FAERS Safety Report 9670000 (Version 1)
Quarter: 2013Q4

REPORT INFORMATION
  Report Type: Spontaneous
  Country: US (occurrence: None)
  Receive Date: 20131104
  Receipt Date: 20131104
  Transmission Date: 20140711
  Serious: Yes (Life-Threatening, Hospitalization)
  Sender: FDA-Public Use
  Company Number: 1713747-2013-99970

PATIENT
  Age: 46 Year
  Sex: Female
  Weight: 75.4 kg

DRUGS (3)
  1. FRESNIUS SALINE [Suspect]
     Indication: HAEMODIALYSIS
  2. FRESENIUS UNKNOWN DIALYZER [Concomitant]
  3. FRESNIUS CONCENTRATE [Concomitant]

REACTIONS (1)
  - Myocardial infarction [None]
